FAERS Safety Report 19276232 (Version 2)
Quarter: 2021Q2

REPORT INFORMATION
  Report Type: Spontaneous
  Country: GB (occurrence: GB)
  Receive Date: 20210520
  Receipt Date: 20210616
  Transmission Date: 20210717
  Serious: Yes (Hospitalization, Other)
  Sender: FDA-Public Use
  Company Number: GB-AUROBINDO-AUR-APL-2021-020628

PATIENT
  Age: 75 Year
  Sex: Female
  Weight: 55 kg

DRUGS (5)
  1. PARACETAMOL [Concomitant]
     Active Substance: ACETAMINOPHEN
     Indication: ILL-DEFINED DISORDER
     Dosage: UNK
     Route: 065
  2. IBUPROFEN. [Suspect]
     Active Substance: IBUPROFEN
     Indication: RHEUMATOID ARTHRITIS
     Dosage: 400MG TWICE DAILY
     Route: 048
     Dates: start: 2018, end: 20210404
  3. BARICITINIB. [Suspect]
     Active Substance: BARICITINIB
     Dosage: 4 MILLIGRAM QOD (4MG ON ALTERNATE DAYS )
     Route: 048
     Dates: start: 202104, end: 20210404
  4. BARICITINIB. [Suspect]
     Active Substance: BARICITINIB
     Dosage: 4 MG, QD4
     Route: 048
     Dates: end: 20210113
  5. BARICITINIB. [Suspect]
     Active Substance: BARICITINIB
     Indication: RHEUMATOID ARTHRITIS
     Dosage: 2 MG, QD
     Route: 048
     Dates: start: 20210113, end: 20210404

REACTIONS (1)
  - Diverticular perforation [Recovering/Resolving]

NARRATIVE: CASE EVENT DATE: 20210409
